FAERS Safety Report 22634698 (Version 1)
Quarter: 2023Q2

REPORT INFORMATION
  Report Type: Spontaneous
  Country: JP (occurrence: None)
  Receive Date: 20230623
  Receipt Date: 20230623
  Transmission Date: 20230721
  Serious: Yes (Other)
  Sender: FDA-Public Use
  Company Number: 2023A128379

PATIENT
  Age: 61 Year
  Sex: Male

DRUGS (7)
  1. ONDEXXYA [Suspect]
     Active Substance: ANDEXANET ALFA
     Indication: Haemorrhage
     Dosage: 400 MG INTRAVENOUSLY AT A RATE OF 30 MG/MIN
     Route: 042
     Dates: start: 20220923, end: 20220923
  2. ONDEXXYA [Suspect]
     Active Substance: ANDEXANET ALFA
     Indication: Haemorrhage
     Dosage: 480 MG INTRAVENOUSLY AT A RATE OF 4 MG/MIN FOR 2 HOURS
     Route: 042
     Dates: start: 20220923, end: 20220923
  3. EDOXABAN TOSYLATE [Concomitant]
     Active Substance: EDOXABAN TOSYLATE
     Indication: Atrial fibrillation
     Route: 048
  4. HEPARIN CALCIUM [Concomitant]
     Active Substance: HEPARIN CALCIUM
     Route: 065
  5. HEPARIN CALCIUM [Concomitant]
     Active Substance: HEPARIN CALCIUM
     Route: 065
  6. NAFAMOSTAT [Concomitant]
     Active Substance: NAFAMOSTAT
  7. ANTITHROMBIN GAMMA(GENETICAL RECOMBINATION) [Concomitant]
     Route: 065

REACTIONS (2)
  - Heparin resistance [Recovered/Resolved]
  - Thrombosis in device [Recovered/Resolved]

NARRATIVE: CASE EVENT DATE: 20220924
